FAERS Safety Report 9536413 (Version 1)
Quarter: 2013Q2

REPORT INFORMATION
  Report Type: Spontaneous
  Country: US (occurrence: None)
  Receive Date: 20130507
  Receipt Date: 20130507
  Transmission Date: 20140414
  Serious: Yes (Hospitalization, Other)
  Sender: FDA-Public Use
  Company Number: PHEH2012US024128

PATIENT
  Age: 52 Year
  Sex: Male
  Weight: 92.5 kg

DRUGS (3)
  1. AFINITOR (RAD) [Suspect]
     Indication: PANCREATIC NEUROENDOCRINE TUMOUR
     Route: 048
     Dates: start: 201203, end: 20121121
  2. OCTREOTIDE (OCTREOTIDE) [Concomitant]
  3. CREON (PANCREATIN) [Concomitant]

REACTIONS (3)
  - Pneumonia [None]
  - Tongue oedema [None]
  - Dyspnoea [None]
